FAERS Safety Report 14703453 (Version 2)
Quarter: 2018Q3

REPORT INFORMATION
  Report Type: Report from Study
  Country: US (occurrence: US)
  Receive Date: 20180402
  Receipt Date: 20180924
  Transmission Date: 20181010
  Serious: Yes (Other)
  Sender: FDA-Public Use
  Company Number: PHEH2018US011312

PATIENT
  Sex: Female

DRUGS (1)
  1. ENTRESTO [Suspect]
     Active Substance: SACUBITRIL\VALSARTAN
     Indication: PRODUCT USED FOR UNKNOWN INDICATION
     Dosage: UNK
     Route: 065

REACTIONS (9)
  - Bipolar disorder [Unknown]
  - Dyspnoea [Unknown]
  - Alopecia [Unknown]
  - Suicidal ideation [Unknown]
  - Confusional state [Unknown]
  - Hair colour changes [Unknown]
  - Procedural pain [Unknown]
  - Feeling abnormal [Unknown]
  - Dizziness [Unknown]
